FAERS Safety Report 19696426 (Version 3)
Quarter: 2022Q1

REPORT INFORMATION
  Report Type: Spontaneous
  Country: US (occurrence: US)
  Receive Date: 20210813
  Receipt Date: 20220210
  Transmission Date: 20220423
  Serious: No
  Sender: FDA-Public Use
  Company Number: US-SUN PHARMACEUTICAL INDUSTRIES LTD-2021R1-299034

PATIENT
  Sex: Female
  Weight: 60.771 kg

DRUGS (5)
  1. EPOPROSTENOL [Suspect]
     Active Substance: EPOPROSTENOL
     Indication: Pulmonary arterial hypertension
     Dosage: 24 NG/KG/MIN CONTINUOUS
     Route: 042
     Dates: start: 20210419
  2. EPOPROSTENOL [Suspect]
     Active Substance: EPOPROSTENOL
     Indication: Pulmonary arterial hypertension
     Dosage: 22 NG/KG/MIN CONTINUOUS
     Route: 042
     Dates: start: 20210419
  3. EPOPROSTENOL [Suspect]
     Active Substance: EPOPROSTENOL
     Dosage: 22 NG/KG/MIN CONTINUOUS
     Route: 042
     Dates: start: 20210419
  4. VELETRI [Concomitant]
     Active Substance: EPOPROSTENOL
     Indication: Pulmonary arterial hypertension
     Dosage: UNK
     Route: 042
     Dates: start: 20201014
  5. REVATIO [Concomitant]
     Active Substance: SILDENAFIL CITRATE
     Indication: Product used for unknown indication
     Dosage: UNK
     Route: 065

REACTIONS (6)
  - Injection site pruritus [Unknown]
  - Injection site dryness [Unknown]
  - Skin irritation [Unknown]
  - Injection site erythema [Unknown]
  - Jaw clicking [Unknown]
  - Pain [Unknown]
